FAERS Safety Report 5985983-0 (Version None)
Quarter: 2008Q4

REPORT INFORMATION
  Report Type: 
  Country: None (occurrence: None)
  Receive Date: 20081205
  Receipt Date: 20081205
  Transmission Date: 20090506
  Serious: Yes (Hospitalization)
  Sender: FDA-Public Use
  Company Number: None

PATIENT
  Age: 75 Year
  Sex: Female
  Weight: 92.77 kg

DRUGS (1)
  1. IODIXANOL [Suspect]
     Dosage: 85 ML ONCE IV
     Route: 042
     Dates: start: 20080327, end: 20080327

REACTIONS (4)
  - HYPOTENSION [None]
  - RASH [None]
  - SWELLING [None]
  - URTICARIA [None]
